FAERS Safety Report 11333599 (Version 1)
Quarter: 2015Q3

REPORT INFORMATION
  Report Type: Spontaneous
  Country: US (occurrence: US)
  Receive Date: 20150803
  Receipt Date: 20150803
  Transmission Date: 20151125
  Serious: Yes (Other)
  Sender: FDA-Public Use
  Company Number: US-ELI_LILLY_AND_COMPANY-US200709005464

PATIENT
  Age: 43 Year
  Sex: Female
  Weight: 83.9 kg

DRUGS (2)
  1. LOPRESSOR [Concomitant]
     Active Substance: METOPROLOL TARTRATE
     Dates: start: 2003
  2. ZYPREXA [Suspect]
     Active Substance: OLANZAPINE
     Dosage: 5 MG, UNK
     Dates: start: 199902, end: 199907

REACTIONS (3)
  - Pancreatitis [Not Recovered/Not Resolved]
  - Hypertension [Unknown]
  - Obesity [Not Recovered/Not Resolved]

NARRATIVE: CASE EVENT DATE: 199905
